FAERS Safety Report 17580538 (Version 7)
Quarter: 2020Q3

REPORT INFORMATION
  Report Type: Spontaneous
  Country: US (occurrence: US)
  Receive Date: 20200325
  Receipt Date: 20200820
  Transmission Date: 20201102
  Serious: Yes (Other)
  Sender: FDA-Public Use
  Company Number: NVSC2020US082856

PATIENT
  Sex: Male

DRUGS (8)
  1. METOPROLOL SUCCINATE. [Concomitant]
     Active Substance: METOPROLOL SUCCINATE
     Indication: PRODUCT USED FOR UNKNOWN INDICATION
     Dosage: 50 MG
     Route: 065
  2. LEXAPRO [Concomitant]
     Active Substance: ESCITALOPRAM OXALATE
     Indication: PRODUCT USED FOR UNKNOWN INDICATION
     Dosage: UNK
     Route: 065
  3. SIMVASTATIN. [Concomitant]
     Active Substance: SIMVASTATIN
     Indication: PRODUCT USED FOR UNKNOWN INDICATION
     Dosage: 80 MG
     Route: 065
  4. BEOVU [Suspect]
     Active Substance: BROLUCIZUMAB-DBLL
     Indication: NEOVASCULAR AGE-RELATED MACULAR DEGENERATION
     Dosage: 6 MG, UNKNOWN
     Route: 047
     Dates: start: 20200123
  5. OCUSOFT HYPOCHLOR [Concomitant]
     Active Substance: HYPOCHLOROUS ACID
     Indication: PRODUCT USED FOR UNKNOWN INDICATION
     Dosage: UNK, PRN
     Route: 061
  6. AZELASTINE. [Concomitant]
     Active Substance: AZELASTINE HYDROCHLORIDE
     Indication: PRODUCT USED FOR UNKNOWN INDICATION
     Dosage: 137 MCG/ML
     Route: 065
  7. KETOROLAC [Concomitant]
     Active Substance: KETOROLAC TROMETHAMINE
     Indication: PRODUCT USED FOR UNKNOWN INDICATION
     Dosage: 1 GTT, TID (OS)
     Route: 065
     Dates: start: 20190924
  8. ASPIRIN. [Concomitant]
     Active Substance: ASPIRIN
     Indication: PRODUCT USED FOR UNKNOWN INDICATION
     Dosage: 81 MG
     Route: 065

REACTIONS (27)
  - Dry age-related macular degeneration [Unknown]
  - Conjunctival haemorrhage [Unknown]
  - Photopsia [Unknown]
  - Vitreous floaters [Unknown]
  - Blepharitis [Recovered/Resolved]
  - Eye pain [Unknown]
  - Posterior capsule opacification [Unknown]
  - Retinal artery occlusion [Not Recovered/Not Resolved]
  - Corneal lesion [Unknown]
  - Myopia [Unknown]
  - Neovascular age-related macular degeneration [Unknown]
  - Maculopathy [Unknown]
  - Ocular hyperaemia [Unknown]
  - Vision blurred [Unknown]
  - Intraocular pressure increased [Unknown]
  - Macular fibrosis [Unknown]
  - Retinal detachment [Unknown]
  - Retinal vasculitis [Not Recovered/Not Resolved]
  - Retinal disorder [Unknown]
  - Retinal degeneration [Unknown]
  - Macular oedema [Unknown]
  - Blindness unilateral [Not Recovered/Not Resolved]
  - Vitritis [Unknown]
  - Dry eye [Unknown]
  - Malaise [Unknown]
  - Dermatochalasis [Unknown]
  - Retinal drusen [Unknown]
